FAERS Safety Report 6664400-1 (Version None)
Quarter: 2010Q2

REPORT INFORMATION
  Report Type: 
  Country: None (occurrence: None)
  Receive Date: 20100401
  Receipt Date: 20100326
  Transmission Date: 20101027
  Serious: Yes (Hospitalization)
  Sender: FDA-Public Use
  Company Number: DE-ROCHE-665407

PATIENT
  Sex: Female
  Weight: 73 kg

DRUGS (5)
  1. BEVACIZUMAB [Suspect]
     Indication: BREAST CANCER
     Dosage: FORM: INFUSION
     Route: 042
  2. EPIRUBICIN [Suspect]
     Indication: BREAST CANCER
     Dosage: FORM: LIQUID; LAST DOSE PRIOR TO SAE: 10 SEP 2009
     Route: 042
     Dates: start: 20090731
  3. TAXOL [Suspect]
     Indication: BREAST CANCER
     Dosage: FORM: LIQUID; LAST DOSE PRIOR TO SAE 22 OCTOBER 2009
     Route: 042
     Dates: start: 20090924
  4. TAVANIC [Concomitant]
     Dates: start: 20091022, end: 20091104
  5. FRAGMIN [Concomitant]
     Dates: start: 20091026, end: 20091028

REACTIONS (1)
  - DISORIENTATION [None]
